FAERS Safety Report 25611856 (Version 1)
Quarter: 2025Q3

REPORT INFORMATION
  Report Type: Spontaneous
  Country: US (occurrence: US)
  Receive Date: 20250728
  Receipt Date: 20250728
  Transmission Date: 20251020
  Serious: Yes (Other)
  Sender: ORGANON
  Company Number: US-ORGANON-O2507USA002030

PATIENT
  Age: 41 Year
  Sex: Female
  Weight: 69.85 kg

DRUGS (16)
  1. NEXPLANON [Suspect]
     Active Substance: ETONOGESTREL
     Route: 059
  2. CAMRESE [Concomitant]
     Active Substance: ETHINYL ESTRADIOL\LEVONORGESTREL
     Dosage: 0.15 MG-30 MCG (84)/10 MCG(7) TABLETS
     Route: 048
  3. VITAMINS [Concomitant]
     Active Substance: VITAMINS
     Route: 048
  4. BREO ELLIPTA [Concomitant]
     Active Substance: FLUTICASONE FUROATE\VILANTEROL TRIFENATATE
  5. EPIPEN [Concomitant]
     Active Substance: EPINEPHRINE
  6. FLUNISOLIDE [Concomitant]
     Active Substance: FLUNISOLIDE
     Route: 045
  7. ALPRAZOLAM [Concomitant]
     Active Substance: ALPRAZOLAM
     Route: 048
  8. FLUCONAZOLE [Concomitant]
     Active Substance: FLUCONAZOLE
     Route: 048
  9. LORATADINE [Concomitant]
     Active Substance: LORATADINE
     Route: 048
  10. MECLIZINE [Concomitant]
     Active Substance: MECLIZINE HYDROCHLORIDE
     Route: 048
  11. MIRALAX [Concomitant]
     Active Substance: POLYETHYLENE GLYCOL 3350
     Route: 048
  12. OMEPRAZOLE [Concomitant]
     Active Substance: OMEPRAZOLE
     Route: 048
  13. ONDANSETRON [Concomitant]
     Active Substance: ONDANSETRON
     Route: 048
  14. TOPIRAMATE [Concomitant]
     Active Substance: TOPIRAMATE
     Route: 048
  15. ALBUTEROL SULFATE [Concomitant]
     Active Substance: ALBUTEROL SULFATE
  16. OLANZAPINE [Concomitant]
     Active Substance: OLANZAPINE

REACTIONS (5)
  - Menometrorrhagia [Not Recovered/Not Resolved]
  - Dysmenorrhoea [Not Recovered/Not Resolved]
  - Abnormal uterine bleeding [Not Recovered/Not Resolved]
  - Pain in extremity [Not Recovered/Not Resolved]
  - Complication associated with device [Not Recovered/Not Resolved]

NARRATIVE: CASE EVENT DATE: 20250331
